FAERS Safety Report 25777776 (Version 1)
Quarter: 2025Q3

REPORT INFORMATION
  Report Type: Spontaneous
  Country: GB (occurrence: GB)
  Receive Date: 20250909
  Receipt Date: 20250909
  Transmission Date: 20251021
  Serious: Yes (Other)
  Sender: CELLTRION
  Company Number: None

PATIENT

DRUGS (18)
  1. YUFLYMA [Suspect]
     Active Substance: ADALIMUMAB-AATY
     Indication: Cystoid macular oedema
     Dosage: 40MG ONCE EVERY 2 WEEKS
     Route: 058
     Dates: start: 20250722
  2. YUFLYMA [Suspect]
     Active Substance: ADALIMUMAB-AATY
  3. LANSOPRAZOLE [Concomitant]
     Active Substance: LANSOPRAZOLE
  4. GABAPENTIN [Concomitant]
     Active Substance: GABAPENTIN
  5. VENLAFAXINE [Concomitant]
     Active Substance: VENLAFAXINE HYDROCHLORIDE
  6. ARIPIPRAZOLE [Concomitant]
     Active Substance: ARIPIPRAZOLE
  7. AZATHIOPRINE [Concomitant]
     Active Substance: AZATHIOPRINE
  8. NAPROXEN [Concomitant]
     Active Substance: NAPROXEN
  9. ALVERINE [Concomitant]
     Active Substance: ALVERINE
  10. AMITRIPTYLINE [Concomitant]
     Active Substance: AMITRIPTYLINE
  11. DESOGESTREL [Concomitant]
     Active Substance: DESOGESTREL
  12. DEXTROAMPHETAMINE [Concomitant]
     Active Substance: DEXTROAMPHETAMINE
  13. METFORMIN [Concomitant]
     Active Substance: METFORMIN HYDROCHLORIDE
  14. ACETAMINOPHEN [Concomitant]
     Active Substance: ACETAMINOPHEN
  15. DIHYDROCODEINE [Concomitant]
     Active Substance: DIHYDROCODEINE
  16. MAXIDEX [Concomitant]
     Active Substance: DEXAMETHASONE
  17. ACULAR [Concomitant]
     Active Substance: KETOROLAC TROMETHAMINE
  18. SUMATRIPTAN [Concomitant]
     Active Substance: SUMATRIPTAN

REACTIONS (4)
  - Depressed mood [Not Recovered/Not Resolved]
  - Decreased appetite [Not Recovered/Not Resolved]
  - Fatigue [Not Recovered/Not Resolved]
  - Intentional product use issue [Unknown]

NARRATIVE: CASE EVENT DATE: 20250722
